FAERS Safety Report 10222945 (Version 1)
Quarter: 2014Q2

REPORT INFORMATION
  Report Type: Spontaneous
  Country: US (occurrence: US)
  Receive Date: 20140607
  Receipt Date: 20140607
  Transmission Date: 20141212
  Serious: Yes (Other)
  Sender: FDA-Public Use
  Company Number: US-JNJFOC-20140516455

PATIENT
  Sex: Female

DRUGS (6)
  1. MOTRIN IB [Suspect]
     Indication: ARTHRALGIA
     Route: 048
  2. TYLENOL UNSPECIFIED [Suspect]
     Indication: ARTHRALGIA
     Route: 065
  3. HUMIRA [Suspect]
     Indication: PSORIATIC ARTHROPATHY
     Route: 065
  4. METHOTREXATE [Suspect]
     Indication: PSORIATIC ARTHROPATHY
     Route: 065
  5. ESTRADIOL [Concomitant]
     Indication: HORMONE LEVEL ABNORMAL
     Route: 065
  6. MULTIVITAMINS [Concomitant]
     Indication: NUTRITIONAL SUPPLEMENTATION
     Route: 065

REACTIONS (24)
  - Liver injury [Unknown]
  - Hepatic fibrosis [Unknown]
  - Bile duct stone [Recovered/Resolved]
  - Uveitis [Unknown]
  - Post procedural complication [Unknown]
  - Post procedural bile leak [Recovered/Resolved]
  - Impaired gastric emptying [Unknown]
  - Gastric disorder [Unknown]
  - Iritis [Unknown]
  - Pustular psoriasis [Unknown]
  - Psoriasis [Unknown]
  - Pain [Unknown]
  - Vomiting [Recovered/Resolved]
  - Decreased appetite [Unknown]
  - Gastric ulcer [Recovered/Resolved]
  - Abdominal pain upper [Recovered/Resolved]
  - Hypoacusis [Unknown]
  - Vagus nerve disorder [Unknown]
  - Dyspnoea [Recovered/Resolved]
  - Rash macular [Unknown]
  - Arthralgia [Unknown]
  - Blister [Unknown]
  - Activities of daily living impaired [Unknown]
  - Diarrhoea [Unknown]
